FAERS Safety Report 8099179-2 (Version None)
Quarter: 2012Q1

REPORT INFORMATION
  Report Type: 
  Country: None (occurrence: None)
  Receive Date: 20120129
  Receipt Date: 20111004
  Transmission Date: 20120608
  Serious: No
  Sender: FDA-Public Use
  Company Number: US-ABBOTT-11P-163-0860885-00

PATIENT
  Sex: Female

DRUGS (4)
  1. UNKNOWN BLOOD PRESSURE MEDICATION [Concomitant]
     Indication: HYPERTENSION
  2. HUMIRA [Suspect]
     Indication: PSORIASIS
     Route: 058
     Dates: start: 20080101, end: 20110901
  3. UNKNOWN STATIN [Concomitant]
     Indication: BLOOD CHOLESTEROL INCREASED
  4. IRON SUPPLEMENT [Concomitant]
     Indication: ANAEMIA

REACTIONS (1)
  - RENAL IMPAIRMENT [None]
